FAERS Safety Report 11806107 (Version 1)
Quarter: 2015Q4

REPORT INFORMATION
  Report Type: Spontaneous
  Country: US (occurrence: US)
  Receive Date: 20151207
  Receipt Date: 20151207
  Transmission Date: 20160305
  Serious: Yes (Other)
  Sender: FDA-Public Use
  Company Number: US-ACTAVIS-2015-26729

PATIENT
  Age: 65 Year
  Sex: Male

DRUGS (2)
  1. DOCETAXEL (ACTAVIS) [Suspect]
     Active Substance: DOCETAXEL
     Indication: LIPOSARCOMA
     Dosage: UNK
     Route: 042
  2. GEMCITABINE [Concomitant]
     Active Substance: GEMCITABINE\GEMCITABINE HYDROCHLORIDE
     Indication: LIPOSARCOMA
     Dosage: UNK
     Route: 042

REACTIONS (3)
  - Neuropathy peripheral [Unknown]
  - Injection site extravasation [Recovering/Resolving]
  - Injection site erythema [Recovering/Resolving]
